FAERS Safety Report 8328583-X (Version None)
Quarter: 2012Q2

REPORT INFORMATION
  Report Type: 
  Country: None (occurrence: None)
  Receive Date: 20120502
  Receipt Date: 20120424
  Transmission Date: 20120825
  Serious: Yes (Hospitalization)
  Sender: FDA-Public Use
  Company Number: FR-SANOFI-AVENTIS-2012SA001342

PATIENT
  Age: 83 Year
  Sex: Male

DRUGS (4)
  1. RIFADIN [Suspect]
     Route: 065
     Dates: start: 20100929, end: 20110422
  2. ALLOPURINOL [Suspect]
     Route: 065
     Dates: start: 20100816, end: 20110201
  3. MYAMBUTOL [Suspect]
     Route: 065
     Dates: start: 20100802, end: 20110422
  4. MABTHERA [Suspect]
     Route: 065
     Dates: start: 20100719, end: 20101119

REACTIONS (6)
  - RASH ERYTHEMATOUS [None]
  - LYMPHOPENIA [None]
  - DRUG RASH WITH EOSINOPHILIA AND SYSTEMIC SYMPTOMS [None]
  - OEDEMA [None]
  - MONONUCLEOSIS SYNDROME [None]
  - EOSINOPHILIA [None]
